FAERS Safety Report 8815177 (Version 1)
Quarter: 2012Q4

REPORT INFORMATION
  Report Type: Report from Study
  Country: US (occurrence: US)
  Receive Date: 20120928
  Receipt Date: 20120928
  Transmission Date: 20130627
  Serious: Yes (Hospitalization)
  Sender: FDA-Public Use
  Company Number: US-GILEAD-2012-0061927

PATIENT
  Age: 68 Year
  Sex: Female

DRUGS (15)
  1. RANOLAZINE [Suspect]
     Indication: PRODUCT USED FOR UNKNOWN INDICATION
     Dosage: 1000 mg  DF, UNK
     Dates: start: 20111013, end: 20111013
  2. RANOLAZINE [Suspect]
     Dosage: 1000 mg, UNK
     Dates: start: 201007, end: 20110101
  3. ALEGLITAZAR [Suspect]
  4. COLESEVELAM [Concomitant]
  5. GABAPENTIN [Concomitant]
  6. METFORMIN HYDROCHLORIDE [Concomitant]
  7. ASPIRIN [Concomitant]
  8. LISPRO INSULIN [Concomitant]
  9. ISOSORBIDE MONONITRATE [Concomitant]
  10. METOPROLOL [Concomitant]
  11. TRAZODONE [Concomitant]
  12. ZOLPIDEM TARTRATE [Concomitant]
  13. CLOPIDOGREL [Concomitant]
  14. ROSUVASTATIN CALCIUM [Concomitant]
  15. VITAMIN E                          /00110501/ [Concomitant]

REACTIONS (1)
  - Syncope [Recovered/Resolved]
